FAERS Safety Report 7388218-X (Version None)
Quarter: 2011Q2

REPORT INFORMATION
  Report Type: 
  Country: None (occurrence: None)
  Receive Date: 20110401
  Receipt Date: 20110128
  Transmission Date: 20111010
  Serious: Yes (Hospitalization, Other)
  Sender: FDA-Public Use
  Company Number: US-BAYER-201041900NA

PATIENT
  Sex: Female

DRUGS (2)
  1. NEXAVAR [Suspect]
     Dosage: 200 MG, BID
     Route: 048
     Dates: start: 20101101, end: 20101201
  2. NEXAVAR [Suspect]
     Indication: HEPATIC NEOPLASM MALIGNANT
     Route: 048
     Dates: start: 20101018, end: 20101001

REACTIONS (8)
  - URINARY TRACT INFECTION [None]
  - BLISTER [None]
  - CONFUSIONAL STATE [None]
  - NEOPLASM [None]
  - HEPATIC NEOPLASM MALIGNANT [None]
  - AMMONIA INCREASED [None]
  - WHITE BLOOD CELL COUNT DECREASED [None]
  - HAEMATOTOXICITY [None]
